FAERS Safety Report 13563128 (Version 1)
Quarter: 2017Q2

REPORT INFORMATION
  Report Type: Spontaneous
  Country: US (occurrence: US)
  Receive Date: 20170518
  Receipt Date: 20170518
  Transmission Date: 20170830
  Serious: No
  Sender: FDA-Public Use
  Company Number: None

PATIENT
  Age: 75 Year
  Sex: Male

DRUGS (1)
  1. FIRMAGON [Suspect]
     Active Substance: DEGARELIX ACETATE

REACTIONS (3)
  - Injection site pain [None]
  - Injection site erythema [None]
  - Injection site bruising [None]

NARRATIVE: CASE EVENT DATE: 20170515
